FAERS Safety Report 4402998-4 (Version None)
Quarter: 2004Q3

REPORT INFORMATION
  Report Type: 
  Country: None (occurrence: None)
  Receive Date: 20040721
  Receipt Date: 20031002
  Transmission Date: 20050211
  Serious: No
  Sender: FDA-Public Use
  Company Number: US-GLAXOSMITHKLINE-A0428701A

PATIENT
  Age: 50 Year
  Sex: Female

DRUGS (1)
  1. IMITREX [Suspect]
     Indication: MIGRAINE
     Dosage: 12.5MG SINGLE DOSE
     Route: 048
     Dates: start: 20030925, end: 20030925

REACTIONS (5)
  - ANGIONEUROTIC OEDEMA [None]
  - RASH ERYTHEMATOUS [None]
  - SKIN BURNING SENSATION [None]
  - SWELLING [None]
  - SWELLING FACE [None]
